FAERS Safety Report 8416328-4 (Version None)
Quarter: 2012Q2

REPORT INFORMATION
  Report Type: 
  Country: None (occurrence: None)
  Receive Date: 20120323
  Receipt Date: 20111128
  Transmission Date: 20120825
  Serious: Yes (Disabling)
  Sender: FDA-Public Use
  Company Number: 163-21880-11080914

PATIENT
  Age: 64 Year
  Sex: Female
  Weight: 68.9467 kg

DRUGS (23)
  1. VALTREX [Concomitant]
  2. TRAMADOL HCL [Concomitant]
  3. PREDNISONE TAB [Concomitant]
  4. BACTRIM [Concomitant]
  5. CLARITIN [Concomitant]
  6. MULTIVITAMIN [Concomitant]
  7. OPTIVE (OPTIVE) [Concomitant]
  8. FOLIC ACID [Concomitant]
  9. LEXAPRO [Concomitant]
  10. ROXICODONE [Concomitant]
  11. REVLIMID [Suspect]
     Indication: MULTIPLE MYELOMA
     Dosage: 25 MG, DAILY X 21D, Q28D, PO ; 20 MG, Q DAY X 21D, Q28D, PO
     Route: 048
     Dates: start: 20081219, end: 20090501
  12. REVLIMID [Suspect]
     Indication: MULTIPLE MYELOMA
     Dosage: 25 MG, DAILY X 21D, Q28D, PO ; 20 MG, Q DAY X 21D, Q28D, PO
     Route: 048
     Dates: start: 20090903, end: 20100730
  13. ATENOLOL [Concomitant]
  14. COMPAZINE [Concomitant]
  15. RANITIDINE HYDROCHLORIDE [Concomitant]
  16. DECADRON [Concomitant]
  17. ASPIRIN [Concomitant]
  18. OMEPRAZOLE [Concomitant]
  19. CYTOXAN [Concomitant]
  20. ZOMETA [Concomitant]
  21. AMLODIPINE [Concomitant]
  22. KLONOPIN [Concomitant]
  23. NEURONTIN [Concomitant]

REACTIONS (2)
  - NEUTROPHIL COUNT [None]
  - DRUG INEFFECTIVE [None]
